FAERS Safety Report 8281928-1 (Version None)
Quarter: 2012Q2

REPORT INFORMATION
  Report Type: 
  Country: None (occurrence: None)
  Receive Date: 20120413
  Receipt Date: 20120410
  Transmission Date: 20120825
  Serious: Yes (Hospitalization, Other)
  Sender: FDA-Public Use
  Company Number: AU-JNJFOC-20040906099

PATIENT
  Age: 80 Year
  Sex: Female
  Weight: 66 kg

DRUGS (13)
  1. VENLAFAXINE [Concomitant]
     Indication: PRODUCT USED FOR UNKNOWN INDICATION
  2. FELODIPINE [Concomitant]
  3. CARBAMAZEPINE [Interacting]
     Indication: PRODUCT USED FOR UNKNOWN INDICATION
  4. PROCHLORPERAZINE [Concomitant]
  5. ASPIRIN AND DIPYRIDAMOLE [Concomitant]
     Dosage: 200/25 MG BD
  6. ATORVASTATIN [Concomitant]
  7. ACETAMINOPHEN [Suspect]
     Indication: MUSCULOSKELETAL PAIN
     Route: 048
  8. GLYCERYL TRINITRATE [Concomitant]
     Route: 062
  9. METFORMIN HCL [Concomitant]
  10. OXAZEPAM [Concomitant]
  11. RAMIPRIL [Concomitant]
  12. ACETAMINOPHEN [Suspect]
     Dosage: 500 MG ONE OR TWO TABLETS WEEKLY
     Route: 048
  13. ATENOLOL [Concomitant]

REACTIONS (3)
  - ACUTE HEPATIC FAILURE [None]
  - DRUG INTERACTION [None]
  - DEMENTIA [None]
